FAERS Safety Report 19834620 (Version 1)
Quarter: 2021Q3

REPORT INFORMATION
  Report Type: Spontaneous
  Country: CA (occurrence: CA)
  Receive Date: 20210914
  Receipt Date: 20210914
  Transmission Date: 20211014
  Serious: Yes (Other)
  Sender: FDA-Public Use
  Company Number: CA-TEVA-2021-CA-1952123

PATIENT
  Age: 55 Year
  Sex: Female

DRUGS (2)
  1. ROSUVASTATIN CALCIUM. [Suspect]
     Active Substance: ROSUVASTATIN CALCIUM
     Indication: HYPERCHOLESTEROLAEMIA
     Dosage: 10 MILLIGRAM DAILY;
     Route: 048
  2. ZOCOR [Suspect]
     Active Substance: SIMVASTATIN
     Indication: HYPERCHOLESTEROLAEMIA
     Dosage: 10 MILLIGRAM DAILY;
     Route: 048

REACTIONS (4)
  - Skin lesion [Not Recovered/Not Resolved]
  - Fixed eruption [Not Recovered/Not Resolved]
  - Drug eruption [Not Recovered/Not Resolved]
  - Cross sensitivity reaction [Not Recovered/Not Resolved]
